FAERS Safety Report 4475773-2 (Version None)
Quarter: 2004Q4

REPORT INFORMATION
  Report Type: 
  Country: None (occurrence: None)
  Receive Date: 20041015
  Receipt Date: 20041014
  Transmission Date: 20050328
  Serious: Yes (Hospitalization)
  Sender: FDA-Public Use
  Company Number: 98

PATIENT
  Age: 59 Year
  Sex: Female

DRUGS (13)
  1. MELPHALAN [Suspect]
     Indication: MULTIPLE MYELOMA
     Dosage: 350MG SINGLE DOSE
     Route: 042
     Dates: start: 20040909, end: 20040909
  2. THALIDOMIDE [Suspect]
     Indication: MULTIPLE MYELOMA
     Route: 048
  3. BORTEZOMIB [Suspect]
     Indication: MULTIPLE MYELOMA
     Route: 065
  4. ADRIAMYCIN PFS [Concomitant]
  5. CYCLOPHOSPHAMIDE [Concomitant]
  6. ETOPOSIDE [Concomitant]
  7. DEXAMETHASONE [Concomitant]
  8. ACYCLOVIR [Concomitant]
  9. TEQUIN [Concomitant]
  10. DILANTIN [Concomitant]
  11. MULTIVITAMIN [Concomitant]
  12. PREMARIN [Concomitant]
  13. NEUPOGEN [Concomitant]

REACTIONS (3)
  - BLOOD CREATININE INCREASED [None]
  - MUCOSAL INFLAMMATION [None]
  - PYREXIA [None]
